FAERS Safety Report 11131333 (Version 1)
Quarter: 2015Q2

REPORT INFORMATION
  Report Type: Spontaneous
  Country: JP (occurrence: JP)
  Receive Date: 20150522
  Receipt Date: 20150522
  Transmission Date: 20150821
  Serious: Yes (Other)
  Sender: FDA-Public Use
  Company Number: JP-EMD SERONO-8025516

PATIENT
  Age: 32 Year
  Sex: Female

DRUGS (1)
  1. SEROPHENE [Suspect]
     Active Substance: CLOMIPHENE CITRATE
     Indication: POLYCYSTIC OVARIES
     Route: 048

REACTIONS (2)
  - Heterotopic pregnancy [Unknown]
  - Intra-abdominal haemorrhage [Unknown]
